FAERS Safety Report 7771414-7 (Version None)
Quarter: 2011Q3

REPORT INFORMATION
  Report Type: 
  Country: None (occurrence: None)
  Receive Date: 20110922
  Receipt Date: 20110113
  Transmission Date: 20111222
  Serious: Yes (Other)
  Sender: FDA-Public Use
  Company Number: US-ASTRAZENECA-2006UW03665

PATIENT
  Age: 15031 Day
  Sex: Female
  Weight: 71.7 kg

DRUGS (24)
  1. SEROQUEL [Suspect]
     Dosage: 200 MG AM, 400 MG HS
     Route: 048
     Dates: start: 20020422
  2. SEROQUEL [Suspect]
     Dosage: 200 MG AM, 400 MG HS
     Route: 048
     Dates: start: 20020422
  3. PRILOSEC [Concomitant]
     Dates: start: 20020422
  4. PRILOSEC [Concomitant]
     Dates: start: 20020611
  5. SEROQUEL [Suspect]
     Indication: BIPOLAR DISORDER
     Dosage: 200-600 MG
     Route: 048
     Dates: start: 20010201, end: 20040101
  6. KLONOPIN [Concomitant]
     Dosage: 0.5 MG TWO TIMES A DAY, 2 TAB HS
     Dates: start: 20020422
  7. ACTOS [Concomitant]
     Dates: start: 20020610
  8. SEROQUEL [Suspect]
     Indication: MENTAL DISORDER
     Dosage: 200-600 MG
     Route: 048
     Dates: start: 20010201, end: 20040101
  9. SEROQUEL [Suspect]
     Route: 048
     Dates: start: 20020611
  10. GLUCOTROL XL [Concomitant]
     Dosage: BID
     Route: 048
     Dates: start: 20040827
  11. TOPAMAX [Concomitant]
     Dates: start: 20020422
  12. SEROQUEL [Suspect]
     Dosage: 200 MG AM, 400 MG HS
     Route: 048
     Dates: start: 20020422
  13. LANTUS [Concomitant]
     Dosage: 10 UNITS QD
     Dates: start: 20040827
  14. KLONOPIN [Concomitant]
     Dates: start: 20020611
  15. DEPAKOTE [Concomitant]
     Dates: start: 20020611
  16. LIPITOR [Concomitant]
     Dates: start: 20030217
  17. SEROQUEL [Suspect]
     Indication: SCHIZOPHRENIA
     Dosage: 200-600 MG
     Route: 048
     Dates: start: 20010201, end: 20040101
  18. SEROQUEL [Suspect]
     Route: 048
     Dates: start: 20020611
  19. SEROQUEL [Suspect]
     Route: 048
     Dates: start: 20020611
  20. TRILEPTAL [Concomitant]
     Dates: start: 20021014
  21. VERAPAMIL HCL [Concomitant]
     Route: 048
     Dates: start: 20020611
  22. AVANDIA [Concomitant]
     Route: 048
     Dates: start: 20040827
  23. VISTARIL [Concomitant]
     Indication: ANXIETY
     Dosage: 50 MG, 1 CAP QID, PRN
     Route: 048
     Dates: start: 20040827
  24. PROZAC [Concomitant]
     Dates: start: 20020422

REACTIONS (8)
  - TYPE 2 DIABETES MELLITUS [None]
  - DIABETES MELLITUS INADEQUATE CONTROL [None]
  - DIABETES MELLITUS [None]
  - MUSCLE TWITCHING [None]
  - DYSPHEMIA [None]
  - TARDIVE DYSKINESIA [None]
  - WEIGHT INCREASED [None]
  - BLOOD CHOLESTEROL INCREASED [None]
